FAERS Safety Report 22609417 (Version 1)
Quarter: 2023Q2

REPORT INFORMATION
  Report Type: Spontaneous
  Country: SE (occurrence: SE)
  Receive Date: 20230616
  Receipt Date: 20230616
  Transmission Date: 20230721
  Serious: Yes (Other)
  Sender: FDA-Public Use
  Company Number: SE-PFIZER INC-202300186981

PATIENT
  Age: 88 Year
  Sex: Female

DRUGS (2)
  1. ESTRADIOL [Suspect]
     Active Substance: ESTRADIOL
     Indication: Genital prolapse
     Dosage: UNK
  2. ESTRADIOL [Suspect]
     Active Substance: ESTRADIOL
     Indication: Urinary tract infection

REACTIONS (6)
  - Hepatic cirrhosis [Not Recovered/Not Resolved]
  - Ascites [Unknown]
  - Genital erythema [Unknown]
  - Liver function test abnormal [Not Recovered/Not Resolved]
  - Peripheral swelling [Unknown]
  - Off label use [Unknown]
